FAERS Safety Report 22115843 (Version 2)
Quarter: 2023Q2

REPORT INFORMATION
  Report Type: Spontaneous
  Country: US (occurrence: US)
  Receive Date: 20230320
  Receipt Date: 20230413
  Transmission Date: 20230722
  Serious: Yes (Hospitalization, Other)
  Sender: FDA-Public Use
  Company Number: US-ALEMBIC PHARMACUETICALS LIMITED-2023SCAL000103

PATIENT

DRUGS (8)
  1. CLONIDINE HYDROCHLORIDE [Interacting]
     Active Substance: CLONIDINE HYDROCHLORIDE
     Indication: Product used for unknown indication
     Dosage: 0.1 MG, TID
     Route: 065
  2. BUPROPION HYDROCHLORIDE [Interacting]
     Active Substance: BUPROPION HYDROCHLORIDE
     Indication: Product used for unknown indication
     Dosage: 450 MILLIGRAM, QD
     Route: 065
  3. DESVENLAFAXINE [Interacting]
     Active Substance: DESVENLAFAXINE
     Indication: Product used for unknown indication
     Dosage: 200 MILLIGRAM, QD
     Route: 065
  4. YOHIMBINE [Interacting]
     Active Substance: YOHIMBINE
     Indication: Supplementation therapy
     Route: 065
  5. BUPRENORPHINE HYDROCHLORIDE\NALOXONE HYDROCHLORIDE [Suspect]
     Active Substance: BUPRENORPHINE HYDROCHLORIDE\NALOXONE HYDROCHLORIDE
     Indication: Product used for unknown indication
     Dosage: 1,5 FILMS DAILY
     Route: 065
  6. LISDEXAMFETAMINE [Suspect]
     Active Substance: LISDEXAMFETAMINE
     Indication: Product used for unknown indication
     Dosage: 60 MG EVERY MORNING AND 40 MG AT NOON
     Route: 065
  7. TRAZODONE [Suspect]
     Active Substance: TRAZODONE HYDROCHLORIDE
     Indication: Product used for unknown indication
     Dosage: 100 MILLIGRAM NIGHTLY
     Route: 065
  8. LEVONORGESTREL [Suspect]
     Active Substance: LEVONORGESTREL
     Indication: Product used for unknown indication
     Dosage: IUD
     Route: 065

REACTIONS (19)
  - Haemorrhage intracranial [Unknown]
  - Subarachnoid haemorrhage [Unknown]
  - Basal ganglia haemorrhage [Unknown]
  - Facial paralysis [Unknown]
  - Hemiparesis [Unknown]
  - Muscular weakness [Unknown]
  - Flushing [Unknown]
  - Vomiting [Unknown]
  - Blood pressure increased [Unknown]
  - Nausea [Unknown]
  - Headache [Unknown]
  - Aphasia [Unknown]
  - Feeling hot [Unknown]
  - Anxiety [Unknown]
  - Feeling jittery [Unknown]
  - Somnolence [Unknown]
  - Fall [Unknown]
  - Drug interaction [Unknown]
  - Condition aggravated [Unknown]
